FAERS Safety Report 19887864 (Version 1)
Quarter: 2021Q3

REPORT INFORMATION
  Report Type: Spontaneous
  Country: CA (occurrence: CA)
  Receive Date: 20210928
  Receipt Date: 20210928
  Transmission Date: 20211014
  Serious: Yes (Life-Threatening, Other)
  Sender: FDA-Public Use
  Company Number: CA-SA-2021SA314986

PATIENT
  Age: 61 Year
  Sex: Female

DRUGS (1)
  1. SODIUM FERRIC GLUCONATE COMPLEX. [Suspect]
     Active Substance: SODIUM FERRIC GLUCONATE COMPLEX
     Dosage: UNK

REACTIONS (6)
  - Gastrointestinal disorder [Unknown]
  - Syncope [Unknown]
  - Dyspnoea [Unknown]
  - Unresponsive to stimuli [Unknown]
  - Chest discomfort [Unknown]
  - Anaphylactic reaction [Unknown]
